FAERS Safety Report 20510448 (Version 3)
Quarter: 2022Q2

REPORT INFORMATION
  Report Type: Spontaneous
  Country: US (occurrence: US)
  Receive Date: 20220224
  Receipt Date: 20220412
  Transmission Date: 20220721
  Serious: No
  Sender: FDA-Public Use
  Company Number: US-GLAXOSMITHKLINE-US2022028891

PATIENT
  Sex: Female

DRUGS (2)
  1. ZEJULA [Suspect]
     Active Substance: NIRAPARIB
     Indication: Ovarian cancer
     Dosage: 300 MG, QD
     Dates: start: 20211105
  2. ZEJULA [Suspect]
     Active Substance: NIRAPARIB
     Dosage: 300 MG AS DIRECTED
     Route: 048

REACTIONS (7)
  - Heart rate increased [Unknown]
  - Dyspnoea [Unknown]
  - Nausea [Unknown]
  - Joint swelling [Unknown]
  - Coronavirus infection [Unknown]
  - Insomnia [Unknown]
  - Middle insomnia [Unknown]
